FAERS Safety Report 7829123-1 (Version None)
Quarter: 2011Q4

REPORT INFORMATION
  Report Type: 
  Country: None (occurrence: None)
  Receive Date: 20111020
  Receipt Date: 20111010
  Transmission Date: 20120403
  Serious: Yes (Hospitalization)
  Sender: FDA-Public Use
  Company Number: PHEH2011US06434

PATIENT
  Age: 58 Year
  Sex: Female
  Weight: 160 kg

DRUGS (2)
  1. FORTEO [Concomitant]
  2. TOBRAMYCIN [Suspect]
     Dosage: 300 MG, BID
     Dates: start: 20110414

REACTIONS (1)
  - INFECTION [None]
